FAERS Safety Report 7797914-1 (Version None)
Quarter: 2011Q4

REPORT INFORMATION
  Report Type: 
  Country: None (occurrence: None)
  Receive Date: 20111005
  Receipt Date: 20110929
  Transmission Date: 20120403
  Serious: Yes (Death)
  Sender: FDA-Public Use
  Company Number: US-GILEAD-2011-0043649

PATIENT

DRUGS (5)
  1. LETAIRIS [Suspect]
     Indication: DIABETES MELLITUS
  2. LETAIRIS [Suspect]
     Indication: PULMONARY HYPERTENSION
     Dates: start: 20081126, end: 20110826
  3. LETAIRIS [Suspect]
     Indication: PULMONARY ARTERIAL PRESSURE ABNORMAL
  4. LETAIRIS [Suspect]
     Indication: CORONARY ARTERY DISEASE
  5. LETAIRIS [Suspect]
     Indication: CORONARY ARTERY BYPASS

REACTIONS (2)
  - CEREBRAL HAEMORRHAGE [None]
  - HEAD INJURY [None]
